FAERS Safety Report 4651959-9 (Version None)
Quarter: 2005Q2

REPORT INFORMATION
  Report Type: 
  Country: None (occurrence: None)
  Receive Date: 20050502
  Receipt Date: 20050502
  Transmission Date: 20051028
  Serious: No
  Sender: FDA-Public Use
  Company Number: None

PATIENT
  Sex: Female
  Weight: 113.8529 kg

DRUGS (1)
  1. FENTANYL [Suspect]
     Dosage: 100 + 125 MCG PATCH CHANGED Q 72 HRS   CHANGE INITIATED 030105
     Route: 062
     Dates: start: 20050301

REACTIONS (7)
  - ANOREXIA [None]
  - DRUG EFFECT DECREASED [None]
  - GAIT DISTURBANCE [None]
  - NAUSEA [None]
  - SOMNOLENCE [None]
  - VOMITING [None]
  - WEIGHT DECREASED [None]
